FAERS Safety Report 6939160-7 (Version None)
Quarter: 2010Q3

REPORT INFORMATION
  Report Type: 
  Country: None (occurrence: None)
  Receive Date: 20100824
  Receipt Date: 20100813
  Transmission Date: 20110219
  Serious: No
  Sender: FDA-Public Use
  Company Number: US-PFIZER INC-2010079742

PATIENT
  Sex: Female
  Weight: 77.098 kg

DRUGS (6)
  1. CHANTIX [Suspect]
     Indication: SMOKING CESSATION THERAPY
     Dosage: 0.5 MG, DAILY
     Dates: start: 20100601
  2. CHANTIX [Suspect]
     Dosage: 1 MG, 2X/DAY
     Route: 048
     Dates: start: 20100601
  3. CHANTIX [Suspect]
     Dosage: 1 MG DAILY
     Dates: start: 20100603
  4. YAZ [Concomitant]
     Dosage: UNK
  5. ALEVE (CAPLET) [Concomitant]
     Dosage: UNK
  6. PEPTO-BISMOL [Concomitant]
     Dosage: UNK

REACTIONS (1)
  - MENSTRUATION IRREGULAR [None]
